FAERS Safety Report 7351559 (Version 3)
Quarter: 2013Q1

REPORT INFORMATION
  Report Type: Spontaneous
  Country: JP (occurrence: None)
  Receive Date: 20100325
  Receipt Date: 20121206
  Transmission Date: 20140127
  Serious: Yes (Hospitalization)
  Sender: FDA-Public Use
  Company Number: 2010BI008506

PATIENT
  Age: 58 Year
  Sex: Female
  Weight: 52 kg

DRUGS (13)
  1. ZEVALIN [Suspect]
     Indication: FOLLICLE CENTRE LYMPHOMA, FOLLICULAR GRADE I, II, III
     Dosage: 762 MBQ; 1X; IV
     Route: 042
     Dates: start: 20090721, end: 20090721
  2. ZEVALIN [Suspect]
     Indication: FOLLICLE CENTRE LYMPHOMA, FOLLICULAR GRADE I, II, III
     Dosage: 762 MBQ; 1X; IV
     Route: 042
     Dates: start: 20090721, end: 20090721
  3. RITUXIMAB (RITUXIMAB) [Suspect]
     Dates: start: 20090721, end: 20090721
  4. POLARAMINE [Concomitant]
  5. LOXOPROFEN [Concomitant]
  6. ZEVALIN [Suspect]
     Dates: start: 20090714, end: 20090714
  7. CYCLOPHOSPHAMIDE [Concomitant]
  8. DOXORUBICIN HYDROCHLORIDE [Concomitant]
  9. VINCRISTINE SULFATE [Concomitant]
  10. PREDNISOLONE [Concomitant]
  11. URSO (URSODEOXYCHOLIC ACID) [Concomitant]
  12. RITUXIMAB (RITUXIMAB) [Suspect]
     Route: 041
     Dates: start: 20090714, end: 20090714
  13. RITUXIMAB (RITUXIMAB) [Concomitant]

REACTIONS (6)
  - Pneumonia [None]
  - Liver disorder [None]
  - Aspartate aminotransferase increased [None]
  - Alanine aminotransferase increased [None]
  - Chest pain [None]
  - Follicle centre lymphoma, follicular grade I, II, III recurrent [None]
